FAERS Safety Report 8916304 (Version 2)
Quarter: 2012Q4

REPORT INFORMATION
  Report Type: 
  Country: US (occurrence: US)
  Receive Date: 20121120
  Receipt Date: 20121205
  Transmission Date: 20130627
  Serious: Yes (Other)
  Sender: FDA-Public Use
  Company Number: PHEH2012US022658

PATIENT
  Sex: Female

DRUGS (5)
  1. RECLAST [Suspect]
     Dosage: UNK UKN, UNK
     Route: 042
  2. OXYCONTIN [Concomitant]
  3. MORPHINE [Concomitant]
  4. PROVIGIL [Concomitant]
  5. LEXAPRO [Concomitant]

REACTIONS (2)
  - Wrist fracture [Unknown]
  - Upper limb fracture [Unknown]
